FAERS Safety Report 25787054 (Version 1)
Quarter: 2025Q3

REPORT INFORMATION
  Report Type: Spontaneous
  Country: VE (occurrence: VE)
  Receive Date: 20250910
  Receipt Date: 20250910
  Transmission Date: 20251020
  Serious: Yes (Death, Hospitalization)
  Sender: NOVARTIS
  Company Number: VE-002147023-NVSC2025VE132984

PATIENT
  Sex: Male

DRUGS (1)
  1. GLIVEC [Suspect]
     Active Substance: IMATINIB MESYLATE
     Indication: Chronic myeloid leukaemia
     Route: 065

REACTIONS (5)
  - Illness [Fatal]
  - Injury [Unknown]
  - Limb discomfort [Unknown]
  - Muscle spasms [Unknown]
  - Musculoskeletal stiffness [Unknown]
